FAERS Safety Report 5975007-3 (Version None)
Quarter: 2008Q4

REPORT INFORMATION
  Report Type: 
  Country: None (occurrence: None)
  Receive Date: 20081128
  Receipt Date: 20081119
  Transmission Date: 20090506
  Serious: Yes (Disabling)
  Sender: FDA-Public Use
  Company Number: 14411821

PATIENT
  Age: 37 Year
  Sex: Male

DRUGS (1)
  1. REVIA [Suspect]
     Indication: ALCOHOLISM
     Dosage: 50 MILLIGRAM 1 DAY
     Route: 048
     Dates: start: 20061227, end: 20061228

REACTIONS (4)
  - DIZZINESS [None]
  - FEELING OF BODY TEMPERATURE CHANGE [None]
  - MYALGIA [None]
  - VOMITING [None]
